FAERS Safety Report 4700186-5 (Version None)
Quarter: 2005Q2

REPORT INFORMATION
  Report Type: 
  Country: None (occurrence: None)
  Receive Date: 20050624
  Receipt Date: 20050624
  Transmission Date: 20051028
  Serious: Yes (Hospitalization)
  Sender: FDA-Public Use
  Company Number: None

PATIENT
  Age: 58 Year
  Sex: Female
  Weight: 102.0593 kg

DRUGS (1)
  1. CLARINEX D 24 HOUR [Suspect]
     Indication: MULTIPLE ALLERGIES
     Dosage: 1/24 HR.
     Dates: start: 20050510, end: 20050513

REACTIONS (3)
  - CAFFEINE CONSUMPTION [None]
  - PALPITATIONS [None]
  - SUPRAVENTRICULAR TACHYCARDIA [None]
